FAERS Safety Report 17533748 (Version 1)
Quarter: 2020Q1

REPORT INFORMATION
  Report Type: Report from Study
  Country: None (occurrence: CA)
  Receive Date: 20200312
  Receipt Date: 20200312
  Transmission Date: 20200409
  Serious: Yes (Other)
  Sender: FDA-Public Use
  Company Number: CA-HLS-202000099

PATIENT
  Age: 82 Year
  Sex: Female

DRUGS (1)
  1. CLOZARIL [Suspect]
     Active Substance: CLOZAPINE
     Route: 048
     Dates: start: 19920921, end: 20200117

REACTIONS (3)
  - White blood cell count increased [Recovered/Resolved]
  - Abnormal sleep-related event [Unknown]
  - Neutrophilia [Recovered/Resolved]
